FAERS Safety Report 18580328 (Version 1)
Quarter: 2020Q4

REPORT INFORMATION
  Report Type: Spontaneous
  Country: DK (occurrence: DK)
  Receive Date: 20201204
  Receipt Date: 20201204
  Transmission Date: 20210114
  Serious: Yes (Hospitalization)
  Sender: FDA-Public Use
  Company Number: DK-TEVA-2020-DK-1854391

PATIENT
  Age: 53 Year
  Sex: Female

DRUGS (1)
  1. ANTABUS [Suspect]
     Active Substance: DISULFIRAM
     Indication: ABSTAINS FROM ALCOHOL
     Dosage: 800 MG
     Route: 048
     Dates: start: 20200817, end: 20201102

REACTIONS (5)
  - Food aversion [Recovering/Resolving]
  - Hepatitis acute [Recovering/Resolving]
  - Nausea [Recovering/Resolving]
  - Fatigue [Recovering/Resolving]
  - Abdominal pain [Recovering/Resolving]

NARRATIVE: CASE EVENT DATE: 20201015
